FAERS Safety Report 24131034 (Version 1)
Quarter: 2024Q3

REPORT INFORMATION
  Report Type: Spontaneous
  Country: US (occurrence: US)
  Receive Date: 20240724
  Receipt Date: 20240724
  Transmission Date: 20241017
  Serious: Yes (Hospitalization)
  Sender: AMGEN
  Company Number: US-AMGEN-USASP2024144597

PATIENT
  Age: 80 Year
  Sex: Male

DRUGS (6)
  1. ROMIPLOSTIM [Suspect]
     Active Substance: ROMIPLOSTIM
     Indication: Immune thrombocytopenia
     Dosage: FIVE WEEKLY DOSES (UP TO 3 MCG/KG)
     Route: 065
  2. PREDNISONE [Suspect]
     Active Substance: PREDNISONE
     Indication: Immune thrombocytopenia
     Dosage: 1 MILLIGRAM/KILOGRAM
     Route: 065
  3. PREDNISONE [Suspect]
     Active Substance: PREDNISONE
     Indication: Renal-limited thrombotic microangiopathy
     Dosage: 1 MILLIGRAM/KILOGRAM, QD
     Route: 065
  4. ELTROMBOPAG [Suspect]
     Active Substance: ELTROMBOPAG
     Indication: Immune thrombocytopenia
     Dosage: 50 MILLIGRAM, QD
     Route: 065
  5. HUMAN IMMUNOGLOBULIN G [Concomitant]
     Active Substance: HUMAN IMMUNOGLOBULIN G
     Indication: Immune thrombocytopenia
     Dosage: 1 MILLIGRAM/KILOGRAM (TWO DOSES)
     Route: 042
  6. PLATELETS [Concomitant]
     Active Substance: HUMAN PLATELET, ALLOGENIC
     Indication: Epistaxis
     Route: 065

REACTIONS (3)
  - Renal-limited thrombotic microangiopathy [Recovering/Resolving]
  - Acute kidney injury [Recovering/Resolving]
  - Off label use [Unknown]
